FAERS Safety Report 4950800-4 (Version None)
Quarter: 2006Q1

REPORT INFORMATION
  Report Type: 
  Country: None (occurrence: None)
  Receive Date: 20060322
  Receipt Date: 20060313
  Transmission Date: 20060701
  Serious: Yes (Other)
  Sender: FDA-Public Use
  Company Number: PHEH2006US03379

PATIENT
  Sex: Female

DRUGS (5)
  1. LISINOPRIL [Suspect]
  2. PROTONIX [Concomitant]
  3. ATENOLOL [Concomitant]
  4. HYDROCHLOROTHIAZID [Concomitant]
  5. TRILEPTAL [Suspect]
     Dosage: 600 MG, QD
     Route: 048

REACTIONS (2)
  - BLOOD PRESSURE SYSTOLIC INCREASED [None]
  - DRUG INTERACTION [None]
